FAERS Safety Report 4629984-3 (Version None)
Quarter: 2005Q2

REPORT INFORMATION
  Report Type: 
  Country: None (occurrence: None)
  Receive Date: 20050408
  Receipt Date: 20050217
  Transmission Date: 20051028
  Serious: Yes (Disabling, Other)
  Sender: FDA-Public Use
  Company Number: US-MERCK-0502USA02313

PATIENT
  Age: 36 Year
  Sex: Male
  Weight: 135 kg

DRUGS (3)
  1. VIOXX [Suspect]
     Indication: POST PROCEDURAL PAIN
     Route: 048
     Dates: start: 20040803, end: 20040801
  2. VIOXX [Suspect]
     Route: 048
     Dates: start: 20040801, end: 20040927
  3. VITAMINS (UNSPECIFIED) [Concomitant]
     Route: 065

REACTIONS (4)
  - BLINDNESS UNILATERAL [None]
  - MACULAR OEDEMA [None]
  - PRESCRIBED OVERDOSE [None]
  - RETINAL VEIN OCCLUSION [None]
